FAERS Safety Report 9523945 (Version 1)
Quarter: 2013Q3

REPORT INFORMATION
  Report Type: Spontaneous
  Country: US (occurrence: None)
  Receive Date: 20130912
  Receipt Date: 20130912
  Transmission Date: 20140515
  Serious: Yes (Other)
  Sender: FDA-Public Use
  Company Number: None

PATIENT
  Age: 47 Year
  Sex: Male
  Weight: 79 kg

DRUGS (2)
  1. TRAZODONE [Suspect]
     Dosage: PTA
  2. OMEPRAZOLE [Concomitant]

REACTIONS (1)
  - Priapism [None]
